FAERS Safety Report 9225207 (Version 1)
Quarter: 2013Q2

REPORT INFORMATION
  Report Type: Report from Study
  Country: CN (occurrence: CN)
  Receive Date: 20130411
  Receipt Date: 20130411
  Transmission Date: 20140414
  Serious: Yes (Death)
  Sender: FDA-Public Use
  Company Number: CN-ROCHE-1207300

PATIENT
  Age: 70 Year
  Sex: Female
  Weight: 75 kg

DRUGS (8)
  1. ALTEPLASE [Suspect]
     Indication: ACUTE MYOCARDIAL INFARCTION
     Route: 065
     Dates: start: 20030409, end: 20030409
  2. ALTEPLASE [Suspect]
     Route: 040
     Dates: start: 20030409, end: 20030409
  3. ALTEPLASE [Suspect]
     Route: 042
     Dates: start: 20030409, end: 20030409
  4. ASPIRIN [Concomitant]
     Indication: ACUTE MYOCARDIAL INFARCTION
     Route: 048
     Dates: start: 20030407
  5. ASPIRIN [Concomitant]
     Route: 048
  6. HEPARIN [Concomitant]
     Indication: ACUTE MYOCARDIAL INFARCTION
     Dosage: 12500 U, DAILY DOSE : 21600 U
     Route: 065
     Dates: start: 20030407, end: 20030411
  7. HEPARIN [Concomitant]
     Dosage: DAILY DOSE : 21600 U
     Route: 040
     Dates: start: 20030407, end: 20030411
  8. HEPARIN [Concomitant]
     Dosage: 900 IUHR, DAILY DOSE : 21600 U
     Route: 041
     Dates: start: 20030407, end: 20030411

REACTIONS (1)
  - Septic shock [Fatal]
